FAERS Safety Report 4462100-X (Version None)
Quarter: 2004Q3

REPORT INFORMATION
  Report Type: 
  Country: None (occurrence: None)
  Receive Date: 20040927
  Receipt Date: 20040927
  Transmission Date: 20050211
  Serious: Yes (Other)
  Sender: FDA-Public Use
  Company Number: None

PATIENT
  Age: 6 Year
  Sex: Male
  Weight: 24 kg

DRUGS (2)
  1. ARIPIPRAZOLE (ABILIFY) BRISTOL-MYERS SQUIBB [Suspect]
     Indication: ABNORMAL BEHAVIOUR
     Dosage: 5 MG PO TABLETS
     Route: 048
     Dates: start: 20040108, end: 20040113
  2. SEROQUEL [Concomitant]

REACTIONS (1)
  - TORTICOLLIS [None]
